FAERS Safety Report 7730233-8 (Version None)
Quarter: 2011Q3

REPORT INFORMATION
  Report Type: 
  Country: None (occurrence: None)
  Receive Date: 20110906
  Receipt Date: 20110830
  Transmission Date: 20111222
  Serious: Yes (Other)
  Sender: FDA-Public Use
  Company Number: JP-ASTRAZENECA-2011SE52636

PATIENT
  Age: 57 Year
  Sex: Female

DRUGS (4)
  1. CANDESARTAN CILEXETIL [Suspect]
     Route: 048
  2. CANDESARTAN CILEXETIL [Suspect]
     Route: 048
  3. CANDESARTAN CILEXETIL [Suspect]
     Indication: PRODUCT USED FOR UNKNOWN INDICATION
     Route: 048
  4. LEVOTHYROXINE SODIUM [Concomitant]
     Indication: PRODUCT USED FOR UNKNOWN INDICATION
     Route: 065

REACTIONS (2)
  - BLOOD PRESSURE FLUCTUATION [None]
  - MENTAL IMPAIRMENT [None]
